FAERS Safety Report 6585452-3 (Version None)
Quarter: 2010Q1

REPORT INFORMATION
  Report Type: 
  Country: None (occurrence: None)
  Receive Date: 20100217
  Receipt Date: 20100211
  Transmission Date: 20100710
  Serious: Yes (Death, Hospitalization)
  Sender: FDA-Public Use
  Company Number: B0634254A

PATIENT
  Age: 73 Year
  Sex: Male

DRUGS (3)
  1. RELENZA [Suspect]
     Indication: H1N1 INFLUENZA
     Route: 065
     Dates: start: 20100105
  2. TAMIFLU [Concomitant]
     Indication: H1N1 INFLUENZA
     Route: 065
  3. ANTIBIOTIC [Concomitant]
     Indication: H1N1 INFLUENZA
     Route: 065

REACTIONS (2)
  - CEREBROVASCULAR ACCIDENT [None]
  - DEATH [None]
